FAERS Safety Report 8472617 (Version 3)
Quarter: 2014Q1

REPORT INFORMATION
  Report Type: Report from Study
  Country: DE (occurrence: DE)
  Receive Date: 20120322
  Receipt Date: 20140117
  Transmission Date: 20141002
  Serious: Yes (Other)
  Sender: FDA-Public Use
  Company Number: DE-JNJFOC-20120307858

PATIENT
  Age: 42 Year
  Sex: Female
  Weight: 107 kg

DRUGS (8)
  1. STELARA [Suspect]
     Indication: PSORIASIS
     Route: 058
     Dates: start: 20090320
  2. ALLOPURINOL [Concomitant]
  3. BELOC ZOK [Concomitant]
  4. ENALAPRIL [Concomitant]
  5. NITRENDIPIN [Concomitant]
  6. L-THYROXIN [Concomitant]
  7. FUROSEMID [Concomitant]
  8. OMEPRAZOLE [Concomitant]

REACTIONS (2)
  - Aphasia [Unknown]
  - Headache [Unknown]
